FAERS Safety Report 7739910-6 (Version None)
Quarter: 2011Q3

REPORT INFORMATION
  Report Type: 
  Country: None (occurrence: None)
  Receive Date: 20110906
  Receipt Date: 20110819
  Transmission Date: 20111222
  Serious: Yes (Death, Hospitalization, Other)
  Sender: FDA-Public Use
  Company Number: AUR-APL-2011-04466

PATIENT
  Age: 78 Year
  Sex: Male

DRUGS (2)
  1. AMOXICILLIN [Suspect]
     Indication: ENDOCARDITIS ENTEROCOCCAL
  2. GENTAMICIN [Suspect]
     Indication: ENDOCARDITIS ENTEROCOCCAL

REACTIONS (8)
  - HYPERGAMMAGLOBULINAEMIA [None]
  - SUDDEN DEATH [None]
  - URTICARIA [None]
  - CARDIOGENIC SHOCK [None]
  - TUBULOINTERSTITIAL NEPHRITIS [None]
  - INFLAMMATION [None]
  - ARTERIOSCLEROSIS CORONARY ARTERY [None]
  - BACTERAEMIA [None]
